FAERS Safety Report 16009833 (Version 1)
Quarter: 2019Q1

REPORT INFORMATION
  Report Type: Spontaneous
  Country: MY (occurrence: MY)
  Receive Date: 20190227
  Receipt Date: 20190227
  Transmission Date: 20190418
  Serious: Yes (Other)
  Sender: FDA-Public Use
  Company Number: MY-009507513-1902MYS009402

PATIENT
  Age: 50 Year
  Sex: Female

DRUGS (1)
  1. INVANZ [Suspect]
     Active Substance: ERTAPENEM SODIUM
     Indication: KLEBSIELLA INFECTION
     Dosage: 500 MILLIGRAM
     Route: 042

REACTIONS (2)
  - Confusional state [Recovered/Resolved]
  - Asthenia [Recovered/Resolved]
